FAERS Safety Report 24748858 (Version 1)
Quarter: 2024Q4

REPORT INFORMATION
  Report Type: Spontaneous
  Country: AR (occurrence: AR)
  Receive Date: 20241218
  Receipt Date: 20241218
  Transmission Date: 20250115
  Serious: Yes (Other)
  Sender: AMGEN
  Company Number: AR-PFIZER INC-202400323538

PATIENT
  Age: 84 Year
  Sex: Female

DRUGS (1)
  1. ENBREL [Suspect]
     Active Substance: ETANERCEPT
     Indication: Rheumatoid arthritis
     Dosage: 50 MG , EVERY 20 DAYS
     Route: 065
     Dates: start: 20091007, end: 20240925

REACTIONS (5)
  - Arrhythmia [Not Recovered/Not Resolved]
  - Sciatica [Not Recovered/Not Resolved]
  - Gait disturbance [Unknown]
  - Off label use [Not Recovered/Not Resolved]
  - Back pain [Unknown]
